FAERS Safety Report 5672273-9 (Version None)
Quarter: 2008Q2

REPORT INFORMATION
  Report Type: 
  Country: None (occurrence: None)
  Receive Date: 20080219
  Receipt Date: 20071210
  Transmission Date: 20081010
  Serious: No
  Sender: FDA-Public Use
  Company Number: TPA2007A02478

PATIENT
  Age: 80 Year
  Sex: Female
  Weight: 59.8748 kg

DRUGS (7)
  1. ROZEREM [Suspect]
     Indication: DRUG USE FOR UNKNOWN INDICATION
     Dosage: PER ORAL
     Route: 048
     Dates: end: 20070930
  2. ZETIA [Concomitant]
  3. GLUCOSAMINE CHONDROITIN (GLUCOSAMINE, CHONDROITIN SULFATE) [Concomitant]
  4. CALCIUM (CALCIUM) [Concomitant]
  5. FISH OIL (FISH OIL) [Concomitant]
  6. WHOLE SOURCE MULTIVITAMIN (ERGOCALCIFEROL, ASCORBIC ACD, FOLIC ACID, T [Concomitant]
  7. MAXAIR [Concomitant]

REACTIONS (1)
  - DRUG INEFFECTIVE [None]
